FAERS Safety Report 7081944-1 (Version None)
Quarter: 2010Q4

REPORT INFORMATION
  Report Type: 
  Country: None (occurrence: None)
  Receive Date: 20101103
  Receipt Date: 20101028
  Transmission Date: 20110411
  Serious: Yes (Other)
  Sender: FDA-Public Use
  Company Number: US-PFIZER INC-2010124276

PATIENT
  Sex: Female
  Weight: 46 kg

DRUGS (3)
  1. XALATAN [Suspect]
     Indication: INTRAOCULAR PRESSURE INCREASED
     Dosage: UNK
     Dates: start: 20091001
  2. TRAVATAN [Suspect]
     Indication: INTRAOCULAR PRESSURE INCREASED
     Dosage: UNK
  3. SYNTHROID [Concomitant]
     Indication: HYPOTHYROIDISM
     Dosage: UNK

REACTIONS (8)
  - CHEST PAIN [None]
  - DRY EYE [None]
  - DRY SKIN [None]
  - EYE IRRITATION [None]
  - EYELID EXFOLIATION [None]
  - EYELID OEDEMA [None]
  - EYELIDS PRURITUS [None]
  - INTRAOCULAR PRESSURE TEST ABNORMAL [None]
